FAERS Safety Report 5827944-8 (Version None)
Quarter: 2008Q3

REPORT INFORMATION
  Report Type: 
  Country: None (occurrence: None)
  Receive Date: 20080730
  Receipt Date: 20080718
  Transmission Date: 20090109
  Serious: Yes (Other)
  Sender: FDA-Public Use
  Company Number: JP-PFIZER INC-2008060925

PATIENT
  Age: 90 Year
  Sex: Female
  Weight: 42 kg

DRUGS (7)
  1. SULPERAZON [Suspect]
     Indication: BILIARY TRACT INFECTION
     Route: 042
     Dates: start: 20080701, end: 20080709
  2. LACTEC [Concomitant]
     Route: 042
  3. ADONA [Concomitant]
     Route: 042
  4. TRANSAMIN [Concomitant]
     Route: 042
  5. FOY [Concomitant]
  6. PARIET [Concomitant]
     Route: 048
  7. FERROMIA [Concomitant]
     Route: 048

REACTIONS (1)
  - HYPOPROTHROMBINAEMIA [None]
